FAERS Safety Report 8903643 (Version 1)
Quarter: 2012Q4

REPORT INFORMATION
  Report Type: 
  Country: US (occurrence: US)
  Receive Date: 20121113
  Receipt Date: 20121113
  Transmission Date: 20130627
  Serious: No
  Sender: FDA-Public Use
  Company Number: US-PFIZER INC-2012281460

PATIENT
  Sex: Male

DRUGS (1)
  1. ADVIL PM [Suspect]
     Dosage: UNK
     Route: 048
     Dates: start: 20121108

REACTIONS (2)
  - Abdominal pain upper [Unknown]
  - Product physical issue [Unknown]
